FAERS Safety Report 17868120 (Version 1)
Quarter: 2020Q2

REPORT INFORMATION
  Report Type: Spontaneous
  Country: MX (occurrence: MX)
  Receive Date: 20200605
  Receipt Date: 20200605
  Transmission Date: 20200714
  Serious: Yes (Other)
  Sender: FDA-Public Use
  Company Number: MX-009507513-2006MEX001733

PATIENT
  Age: 12 Year
  Sex: Female
  Weight: 52 kg

DRUGS (3)
  1. IVERMECTIN. [Suspect]
     Active Substance: IVERMECTIN
     Indication: ACARODERMATITIS
     Dosage: SINGLE USE
     Route: 048
     Dates: start: 20200420, end: 20200420
  2. IVERMECTIN. [Suspect]
     Active Substance: IVERMECTIN
     Dosage: SINGLE USE
     Route: 048
     Dates: start: 20200429, end: 20200429
  3. LEVOCETIRIZINE [Concomitant]
     Active Substance: LEVOCETIRIZINE
     Indication: ACARODERMATITIS
     Dosage: 5 MILLIGRAM, THREE TIMES A DAY
     Route: 048
     Dates: start: 20200420, end: 20200429

REACTIONS (2)
  - International normalised ratio increased [Recovered/Resolved]
  - Prothrombin time prolonged [Recovered/Resolved]

NARRATIVE: CASE EVENT DATE: 20200429
